FAERS Safety Report 8895847 (Version 2)
Quarter: 2012Q4

REPORT INFORMATION
  Report Type: 
  Country: IT (occurrence: IT)
  Receive Date: 20121108
  Receipt Date: 20121211
  Transmission Date: 20130627
  Serious: Yes (Hospitalization)
  Sender: FDA-Public Use
  Company Number: IT-JNJFOC-20121100627

PATIENT
  Age: 27 Year
  Sex: Female

DRUGS (6)
  1. HALDOL [Suspect]
     Indication: BIPOLAR DISORDER
     Route: 030
     Dates: start: 20120801, end: 20120911
  2. LAMICTAL [Suspect]
     Indication: BIPOLAR DISORDER
     Route: 048
     Dates: start: 20120801, end: 20120921
  3. ZOLPIDEM TARTRATE [Concomitant]
     Indication: INSOMNIA
     Route: 065
  4. XANAX [Concomitant]
     Indication: BIPOLAR DISORDER
     Route: 048
  5. SEREUPIN [Concomitant]
     Indication: BIPOLAR DISORDER
     Route: 048
  6. TALOFEN [Concomitant]
     Indication: BIPOLAR DISORDER
     Route: 048

REACTIONS (1)
  - Drug reaction with eosinophilia and systemic symptoms [Recovered/Resolved]
